FAERS Safety Report 13088683 (Version 4)
Quarter: 2017Q1

REPORT INFORMATION
  Report Type: Spontaneous
  Country: BE (occurrence: BE)
  Receive Date: 20170105
  Receipt Date: 20170325
  Transmission Date: 20170428
  Serious: Yes (Disabling, Other)
  Sender: FDA-Public Use
  Company Number: BE-AMGEN-BELSP2016181397

PATIENT
  Age: 55 Year
  Sex: Male

DRUGS (7)
  1. BURINEX [Concomitant]
     Active Substance: BUMETANIDE
     Dosage: UNK
  2. BISOPROLOL [Concomitant]
     Active Substance: BISOPROLOL
     Dosage: UNK
  3. ANAFLON [Concomitant]
     Dosage: UNK
  4. ARANESP [Suspect]
     Active Substance: DARBEPOETIN ALFA
     Indication: PRODUCT USED FOR UNKNOWN INDICATION
     Dosage: UNK, Q2WK
     Route: 058
     Dates: start: 201610
  5. SEDARIL [Concomitant]
     Dosage: UNK
  6. SIMVASTATIN. [Concomitant]
     Active Substance: SIMVASTATIN
     Dosage: UNK
  7. ALLOPURINOL. [Concomitant]
     Active Substance: ALLOPURINOL
     Dosage: UNK

REACTIONS (8)
  - Skin swelling [Unknown]
  - Skin reaction [Recovering/Resolving]
  - Eyelids pruritus [Unknown]
  - Eczema [Not Recovered/Not Resolved]
  - Anti-erythropoietin antibody positive [Unknown]
  - Face oedema [Unknown]
  - Pruritus [Unknown]
  - Erythema [Unknown]

NARRATIVE: CASE EVENT DATE: 201611
